FAERS Safety Report 8019848-X (Version None)
Quarter: 2012Q1

REPORT INFORMATION
  Report Type: 
  Country: None (occurrence: None)
  Receive Date: 20120103
  Receipt Date: 20111227
  Transmission Date: 20120608
  Serious: Yes (Other)
  Sender: FDA-Public Use
  Company Number: BR-PFIZER INC-2011314595

PATIENT
  Age: 76 Year
  Sex: Female

DRUGS (5)
  1. PHARMATON [Concomitant]
     Indication: VITAMIN SUPPLEMENTATION
     Dosage: UNK
     Dates: start: 20060101
  2. ALENDRONATE SODIUM [Concomitant]
     Indication: OSTEOPOROSIS
     Dosage: 1 (UNSPECIFIED) WEEKLY
     Dates: start: 20100601
  3. TOLTERODINE TARTRATE [Suspect]
     Indication: URINARY INCONTINENCE
     Dosage: 4 MG, 1X/DAY
     Route: 048
     Dates: start: 20110922, end: 20111011
  4. LOSARTAN POTASSIUM [Concomitant]
     Indication: HYPERTENSION
     Dosage: UNK
     Dates: start: 20010101
  5. TAMOXIFEN [Concomitant]
     Indication: BREAST CANCER
     Dosage: UNK
     Dates: start: 20070601

REACTIONS (8)
  - VISION BLURRED [None]
  - DIZZINESS [None]
  - VISUAL IMPAIRMENT [None]
  - FATIGUE [None]
  - SOMNOLENCE [None]
  - MENTAL IMPAIRMENT [None]
  - CONFUSIONAL STATE [None]
  - MEMORY IMPAIRMENT [None]
